FAERS Safety Report 9190114 (Version 3)
Quarter: 2013Q2

REPORT INFORMATION
  Report Type: Spontaneous
  Country: US (occurrence: US)
  Receive Date: 20130326
  Receipt Date: 20130503
  Transmission Date: 20140414
  Serious: No
  Sender: FDA-Public Use
  Company Number: US-PFIZER INC-2013096210

PATIENT
  Sex: Female

DRUGS (6)
  1. LYRICA [Suspect]
     Indication: DIABETIC NEUROPATHY
     Dosage: UNK
  2. NEURONTIN [Suspect]
     Dosage: UNK
  3. NEXIUM [Suspect]
     Dosage: UNK
  4. LANTUS [Suspect]
     Dosage: UNK
  5. HUMALOG [Suspect]
     Dosage: UNK
  6. CRESTOR [Suspect]
     Dosage: UNK

REACTIONS (2)
  - Stress [Unknown]
  - Condition aggravated [Unknown]
